FAERS Safety Report 4868852-9 (Version None)
Quarter: 2005Q4

REPORT INFORMATION
  Report Type: 
  Country: None (occurrence: None)
  Receive Date: 20051229
  Receipt Date: 20050406
  Transmission Date: 20060501
  Serious: Yes (Hospitalization)
  Sender: FDA-Public Use
  Company Number: US-MERCK-0504USA01077

PATIENT
  Age: 67 Year
  Sex: Female
  Weight: 55 kg

DRUGS (2)
  1. VIOXX [Suspect]
     Indication: ARTHRITIS
     Route: 048
     Dates: start: 19990901, end: 20030901
  2. VIOXX [Suspect]
     Route: 048
     Dates: start: 19990901, end: 20030901

REACTIONS (12)
  - ATRIOVENTRICULAR BLOCK COMPLETE [None]
  - BACK PAIN [None]
  - CARDIOVASCULAR DISORDER [None]
  - CORONARY ARTERY DISEASE [None]
  - CORONARY ARTERY OCCLUSION [None]
  - CORONARY ARTERY THROMBOSIS [None]
  - GENERAL SYMPTOM [None]
  - HYPERCHOLESTEROLAEMIA [None]
  - HYPOTENSION [None]
  - JARISCH-HERXHEIMER REACTION [None]
  - MYOCARDIAL INFARCTION [None]
  - THROMBOSIS [None]
